FAERS Safety Report 9434576 (Version 2)
Quarter: 2013Q3

REPORT INFORMATION
  Report Type: Report from Study
  Country: AU (occurrence: AU)
  Receive Date: 20130801
  Receipt Date: 20130903
  Transmission Date: 20140515
  Serious: Yes (Hospitalization, Other)
  Sender: FDA-Public Use
  Company Number: AU-ASTRAZENECA-2013SE50932

PATIENT
  Age: 80 Year
  Sex: Male

DRUGS (2)
  1. ZOLADEX [Suspect]
     Indication: PROSTATE CANCER
     Route: 058
     Dates: start: 1999
  2. COSUDEX [Concomitant]
     Route: 048

REACTIONS (9)
  - Bladder cancer [Unknown]
  - Urinary bladder haemorrhage [Not Recovered/Not Resolved]
  - Urinary bladder polyp [Unknown]
  - Bladder diverticulum [Unknown]
  - Haemoglobin decreased [Unknown]
  - Epididymitis [Unknown]
  - Hernia [Unknown]
  - Hot flush [Not Recovered/Not Resolved]
  - Asthenia [Not Recovered/Not Resolved]
